FAERS Safety Report 7205487-7 (Version None)
Quarter: 2010Q4

REPORT INFORMATION
  Report Type: 
  Country: None (occurrence: None)
  Receive Date: 20101231
  Receipt Date: 20101216
  Transmission Date: 20110411
  Serious: Yes (Hospitalization)
  Sender: FDA-Public Use
  Company Number: PHHY2010US84011

PATIENT
  Sex: Female

DRUGS (1)
  1. GLEEVEC [Suspect]
     Indication: MASTOCYTOSIS
     Dosage: 400 MG, UNK
     Route: 048
     Dates: start: 20101001

REACTIONS (10)
  - ANXIETY [None]
  - ATRIAL FIBRILLATION [None]
  - BRAIN STEM INFARCTION [None]
  - COUGH [None]
  - DYSPNOEA [None]
  - HYPOVENTILATION [None]
  - INCREASED BRONCHIAL SECRETION [None]
  - PAIN [None]
  - PNEUMONIA ASPIRATION [None]
  - RESPIRATORY FAILURE [None]
